FAERS Safety Report 25025995 (Version 1)
Quarter: 2025Q1

REPORT INFORMATION
  Report Type: Spontaneous
  Country: US (occurrence: US)
  Receive Date: 20250301
  Receipt Date: 20250301
  Transmission Date: 20250409
  Serious: No
  Sender: TEVA
  Company Number: US-TEVA-VS-3297838

PATIENT

DRUGS (1)
  1. DEXTROAMPHETAMINE [Suspect]
     Active Substance: DEXTROAMPHETAMINE
     Indication: Product used for unknown indication
     Route: 065

REACTIONS (7)
  - Physical disability [Unknown]
  - Migraine [Unknown]
  - Emotional distress [Unknown]
  - Brain fog [Unknown]
  - Therapeutic product effect variable [Unknown]
  - Headache [Unknown]
  - Product complaint [Unknown]
